FAERS Safety Report 8880801 (Version 4)
Quarter: 2019Q1

REPORT INFORMATION
  Report Type: Spontaneous
  Country: US (occurrence: US)
  Receive Date: 20121101
  Receipt Date: 20190328
  Transmission Date: 20190418
  Serious: No
  Sender: FDA-Public Use
  Company Number: US-ASTRAZENECA-2012SE81725

PATIENT
  Age: 64 Year
  Sex: Female
  Weight: 70.3 kg

DRUGS (4)
  1. FASENRA [Suspect]
     Active Substance: BENRALIZUMAB
     Indication: CHRONIC OBSTRUCTIVE PULMONARY DISEASE
     Route: 058
     Dates: start: 201809
  2. FASENRA [Suspect]
     Active Substance: BENRALIZUMAB
     Indication: ASTHMA
     Route: 058
     Dates: start: 201809
  3. SYMBICORT [Suspect]
     Active Substance: BUDESONIDE\FORMOTEROL FUMARATE DIHYDRATE
     Dosage: UNKNOWN UNKNOWN
     Route: 055
  4. AMLODIPINE [Concomitant]
     Active Substance: AMLODIPINE BESYLATE
     Indication: BLOOD PRESSURE MEASUREMENT
     Route: 048

REACTIONS (28)
  - Feeling hot [Unknown]
  - Nasopharyngitis [Unknown]
  - Back pain [Unknown]
  - Feeling abnormal [Unknown]
  - Bone pain [Unknown]
  - Eye irritation [Unknown]
  - Sneezing [Unknown]
  - Fatigue [Unknown]
  - Dizziness [Unknown]
  - Rhinorrhoea [Unknown]
  - Rash [Unknown]
  - Product use in unapproved indication [Unknown]
  - Burning sensation [Unknown]
  - Off label use [Unknown]
  - Memory impairment [Unknown]
  - Diarrhoea [Unknown]
  - Ocular hyperaemia [Unknown]
  - Depression [Unknown]
  - Vision blurred [Unknown]
  - Visual impairment [Unknown]
  - Anxiety [Unknown]
  - Insomnia [Unknown]
  - Chronic obstructive pulmonary disease [Unknown]
  - Abdominal pain [Unknown]
  - Asthma [Unknown]
  - Pyrexia [Unknown]
  - Pain [Unknown]
  - Throat irritation [Unknown]

NARRATIVE: CASE EVENT DATE: 201811
